FAERS Safety Report 22973867 (Version 6)
Quarter: 2025Q2

REPORT INFORMATION
  Report Type: Spontaneous
  Country: CA (occurrence: CA)
  Receive Date: 20230922
  Receipt Date: 20250415
  Transmission Date: 20250716
  Serious: Yes (Hospitalization, Other)
  Sender: INTERCEPT PHARMACEUTICALS
  Company Number: CA-ADVANZ PHARMA-202309007911

PATIENT
  Age: 52 Year
  Sex: Female

DRUGS (2)
  1. OCALIVA [Suspect]
     Active Substance: OBETICHOLIC ACID
     Indication: Primary biliary cholangitis
     Dosage: 5 MG, QD (1 TABLET ONCE A DAY IN MORNING)
     Route: 048
     Dates: start: 20230606
  2. URSODIOL [Concomitant]
     Active Substance: URSODIOL
     Dates: start: 2020

REACTIONS (14)
  - Pyelonephritis [Unknown]
  - Crohn^s disease [Unknown]
  - Metabolic dysfunction-associated steatohepatitis [Unknown]
  - Constipation [Unknown]
  - Malaise [Unknown]
  - Dry mouth [Unknown]
  - Myalgia [Unknown]
  - Back pain [Unknown]
  - Anxiety [Recovering/Resolving]
  - Panic attack [Recovering/Resolving]
  - Injury [Recovering/Resolving]
  - Blood alkaline phosphatase abnormal [Not Recovered/Not Resolved]
  - Arthralgia [Unknown]
  - Pruritus [Recovered/Resolved]
